FAERS Safety Report 9843999 (Version 1)
Quarter: 2013Q4

REPORT INFORMATION
  Report Type: Spontaneous
  Country: US (occurrence: None)
  Receive Date: 20131223
  Receipt Date: 20131223
  Transmission Date: 20140711
  Serious: No
  Sender: FDA-Public Use
  Company Number: 1000050776

PATIENT
  Age: 74 Year
  Sex: Female

DRUGS (5)
  1. LINZESS (LINACLOTIDE) (145 MICROGRAM, CAPSULES) [Suspect]
     Indication: CONSTIPATION
     Route: 048
     Dates: start: 20131102, end: 20131103
  2. DULCOLAX (BISACODYL) [Suspect]
     Indication: CONSTIPATION
     Dates: end: 20131102
  3. COREG (CARVEDILOL (CARVEDILOL) [Concomitant]
  4. DIOVAN (VALSARTAN) (VALSARTAN) [Concomitant]
  5. THYROID MEDICATION NOS (THYROID MEDICATION NOS) [Concomitant]

REACTIONS (2)
  - Diarrhoea [None]
  - Flatulence [None]
